FAERS Safety Report 21702619 (Version 1)
Quarter: 2022Q4

REPORT INFORMATION
  Report Type: Other
  Country: US (occurrence: US)
  Receive Date: 20221208
  Receipt Date: 20221208
  Transmission Date: 20230113
  Serious: No
  Sender: FDA-Public Use
  Company Number: US-IBSA PHARMA INC.-2022IBS000196

PATIENT

DRUGS (18)
  1. LEVOTHYROXINE SODIUM [Suspect]
     Active Substance: LEVOTHYROXINE SODIUM
     Indication: Product used for unknown indication
     Dosage: UNK
     Route: 048
     Dates: start: 202204
  2. KORLYM [Suspect]
     Active Substance: MIFEPRISTONE
     Indication: Cushing^s syndrome
     Dosage: 300 MILLIGRAM, QD
     Route: 048
     Dates: start: 20210405, end: 20210519
  3. KORLYM [Suspect]
     Active Substance: MIFEPRISTONE
     Dosage: 300/600 ALTERNATING
     Route: 048
     Dates: start: 20210520, end: 20210523
  4. KORLYM [Suspect]
     Active Substance: MIFEPRISTONE
     Dosage: 300 MILLIGRAM, QD
     Route: 048
     Dates: start: 20210524, end: 20210601
  5. KORLYM [Suspect]
     Active Substance: MIFEPRISTONE
     Dosage: 300/600 ALTERNATING
     Route: 048
     Dates: start: 20210602, end: 2021
  6. KORLYM [Suspect]
     Active Substance: MIFEPRISTONE
     Dosage: 300 MILLIGRAM, QD
     Route: 048
     Dates: start: 2021, end: 202107
  7. KORLYM [Suspect]
     Active Substance: MIFEPRISTONE
     Dosage: 300 MILLIGRAM, QOD
     Route: 048
     Dates: start: 202107, end: 20211103
  8. KORLYM [Suspect]
     Active Substance: MIFEPRISTONE
     Dosage: 300 MILLIGRAM, QOD
     Route: 048
     Dates: start: 20220105
  9. ACYCLOVIR [Concomitant]
     Active Substance: ACYCLOVIR
     Indication: Product used for unknown indication
  10. ALDACTONE                          /00006201/ [Concomitant]
     Indication: Product used for unknown indication
  11. ATORVASTATIN [Concomitant]
     Active Substance: ATORVASTATIN
     Indication: Product used for unknown indication
  12. CABERGOLINE [Concomitant]
     Active Substance: CABERGOLINE
     Indication: Product used for unknown indication
  13. LEXAPRO [Concomitant]
     Active Substance: ESCITALOPRAM OXALATE
     Indication: Product used for unknown indication
  14. SPIRONOLACTONE [Concomitant]
     Active Substance: SPIRONOLACTONE
     Indication: Product used for unknown indication
  15. NORDITROPIN [Concomitant]
     Active Substance: SOMATROPIN
     Indication: Product used for unknown indication
  16. RESTASIS [Concomitant]
     Active Substance: CYCLOSPORINE
     Indication: Product used for unknown indication
  17. SYNTHROID [Concomitant]
     Active Substance: LEVOTHYROXINE SODIUM
     Indication: Product used for unknown indication
  18. WELLBUTRIN [Concomitant]
     Active Substance: BUPROPION HYDROCHLORIDE
     Indication: Product used for unknown indication

REACTIONS (2)
  - Sinusitis [Recovered/Resolved]
  - Fatigue [Unknown]

NARRATIVE: CASE EVENT DATE: 20220501
